FAERS Safety Report 6203799-7 (Version None)
Quarter: 2009Q2

REPORT INFORMATION
  Report Type: 
  Country: None (occurrence: None)
  Receive Date: 20090527
  Receipt Date: 20090515
  Transmission Date: 20091009
  Serious: Yes (Hospitalization)
  Sender: FDA-Public Use
  Company Number: PHHY2009GB10614

PATIENT
  Sex: Female
  Weight: 59 kg

DRUGS (1)
  1. VOLTAROL PAIN- EZE(NCH) [Suspect]
     Indication: BACK PAIN

REACTIONS (7)
  - ANAPHYLACTIC REACTION [None]
  - HEARING IMPAIRED [None]
  - OEDEMA PERIPHERAL [None]
  - PRURITUS GENERALISED [None]
  - SWELLING FACE [None]
  - SWOLLEN TONGUE [None]
  - VISUAL IMPAIRMENT [None]
